FAERS Safety Report 5654406-3 (Version None)
Quarter: 2008Q1

REPORT INFORMATION
  Report Type: 
  Country: None (occurrence: None)
  Receive Date: 20080305
  Receipt Date: 20080218
  Transmission Date: 20080703
  Serious: Yes (Disabling)
  Sender: FDA-Public Use
  Company Number: 0810016

PATIENT
  Age: 9 Year
  Sex: Male
  Weight: 56 kg

DRUGS (1)
  1. ORFADIN [Suspect]
     Indication: TYROSINAEMIA
     Dosage: 57 MILLIGRAM A DAY ORAL
     Route: 048
     Dates: start: 19980701

REACTIONS (1)
  - LEARNING DISORDER [None]
